FAERS Safety Report 10677159 (Version 3)
Quarter: 2015Q1

REPORT INFORMATION
  Report Type: Spontaneous
  Country: US (occurrence: US)
  Receive Date: 20141226
  Receipt Date: 20150116
  Transmission Date: 20150720
  Serious: Yes (Death, Other)
  Sender: FDA-Public Use
  Company Number: US-INCYTE CORPORATION-2014IN004016

PATIENT
  Age: 82 Year
  Sex: Male
  Weight: 68.03 kg

DRUGS (18)
  1. PROTONIX [Concomitant]
     Active Substance: PANTOPRAZOLE SODIUM
  2. DEMADEX [Concomitant]
     Active Substance: TORSEMIDE
  3. JAKAFI [Suspect]
     Active Substance: RUXOLITINIB
     Indication: MYELOFIBROSIS
     Dosage: 5 MG, QD
     Route: 048
     Dates: start: 20140206, end: 20141201
  4. PROCRIT [Concomitant]
     Active Substance: ERYTHROPOIETIN
  5. GABAPENTIN. [Concomitant]
     Active Substance: GABAPENTIN
  6. SIMVASTATIN. [Concomitant]
     Active Substance: SIMVASTATIN
  7. CEFDINIR. [Concomitant]
     Active Substance: CEFDINIR
  8. CIPRO                              /00697201/ [Concomitant]
     Active Substance: CIPROFLOXACIN
  9. CARVEDILOL. [Concomitant]
     Active Substance: CARVEDILOL
  10. FERREX [Concomitant]
  11. TYLENOL [Concomitant]
     Active Substance: ACETAMINOPHEN
  12. VITAMIN D                          /00107901/ [Concomitant]
     Active Substance: ERGOCALCIFEROL
  13. VICODIN [Concomitant]
     Active Substance: ACETAMINOPHEN\HYDROCODONE BITARTRATE
  14. PREDNISONE. [Concomitant]
     Active Substance: PREDNISONE
  15. ALLOPURINOL. [Concomitant]
     Active Substance: ALLOPURINOL
  16. POTASSIUM [Concomitant]
     Active Substance: POTASSIUM
  17. REQUIP [Concomitant]
     Active Substance: ROPINIROLE HYDROCHLORIDE
  18. BENADRYL [Concomitant]
     Active Substance: DIPHENHYDRAMINE HYDROCHLORIDE

REACTIONS (7)
  - Cardiac failure congestive [Fatal]
  - White blood cell count increased [Not Recovered/Not Resolved]
  - Blood creatinine increased [Not Recovered/Not Resolved]
  - Blood urea increased [Not Recovered/Not Resolved]
  - Platelet count decreased [Not Recovered/Not Resolved]
  - Haematocrit decreased [Not Recovered/Not Resolved]
  - Haemoglobin decreased [Not Recovered/Not Resolved]

NARRATIVE: CASE EVENT DATE: 20141203
